FAERS Safety Report 7746142-4 (Version None)
Quarter: 2011Q3

REPORT INFORMATION
  Report Type: 
  Country: None (occurrence: None)
  Receive Date: 20110913
  Receipt Date: 20110831
  Transmission Date: 20111222
  Serious: Yes (Hospitalization, Other)
  Sender: FDA-Public Use
  Company Number: US-ELI_LILLY_AND_COMPANY-US201107005443

PATIENT
  Age: 88 Year
  Sex: Female
  Weight: 68.027 kg

DRUGS (8)
  1. LASIX [Concomitant]
     Indication: OEDEMA PERIPHERAL
     Dosage: 40 MG, QD
  2. DIOVAN [Concomitant]
     Dosage: 160 MG, QD
  3. GLUCOTROL XL [Concomitant]
  4. COUMADIN [Concomitant]
     Indication: THROMBOSIS
  5. TENORMIN [Concomitant]
     Indication: HEART RATE INCREASED
  6. FORTEO [Suspect]
     Indication: OSTEOPOROSIS POSTMENOPAUSAL
     Dosage: 20 UG, QD
     Route: 058
     Dates: start: 20110511
  7. OSCAL                              /00108001/ [Concomitant]
  8. VITAMIN D [Concomitant]

REACTIONS (8)
  - OEDEMA PERIPHERAL [None]
  - WOUND DRAINAGE [None]
  - SCAB [None]
  - THROMBOSIS [None]
  - RASH [None]
  - DRUG HYPERSENSITIVITY [None]
  - PULMONARY EMBOLISM [None]
  - WOUND INFECTION STAPHYLOCOCCAL [None]
